FAERS Safety Report 6258578-1 (Version None)
Quarter: 2009Q3

REPORT INFORMATION
  Report Type: 
  Country: None (occurrence: None)
  Receive Date: 20090707
  Receipt Date: 20090702
  Transmission Date: 20100115
  Serious: Yes (Death)
  Sender: FDA-Public Use
  Company Number: DE-ROCHE-641762

PATIENT
  Sex: Female
  Weight: 70 kg

DRUGS (5)
  1. CAPECITABINE [Suspect]
     Dosage: FREQUENCY REPORTED AS: DAY 1-DAY 14.DOSAGE FORM REPORTED: PO.
     Route: 048
  2. OXALIPLATIN [Suspect]
     Dosage: FREQUENCY REPORTED AS: DAY 1.DOSAGE FORM REPORTED: IV.
     Route: 042
  3. OMEPRAZOL [Concomitant]
     Dates: start: 20090326
  4. TOREM [Concomitant]
     Dates: start: 20070216
  5. NOVAMINSULFON [Concomitant]
     Dosage: TOTAL DAILY DOSE REPORTED AS: 30 ^GH^
     Dates: start: 20080304

REACTIONS (1)
  - DEATH [None]
